FAERS Safety Report 4749839-3 (Version None)
Quarter: 2005Q3

REPORT INFORMATION
  Report Type: 
  Country: None (occurrence: None)
  Receive Date: 20050822
  Receipt Date: 20050811
  Transmission Date: 20060218
  Serious: Yes (Death)
  Sender: FDA-Public Use
  Company Number: US-SANOFI-SYNTHELABO-A03200502490

PATIENT

DRUGS (4)
  1. PLAVIX [Suspect]
     Indication: DRUG USE FOR UNKNOWN INDICATION
     Dosage: UNK
     Route: 048
  2. AVAPRO [Suspect]
     Dosage: UNK
     Route: 048
  3. GLUCOPHAGE [Suspect]
     Dosage: UNK
     Route: 048
  4. GLUCOVANCE [Suspect]
     Dosage: UNK
     Route: 048

REACTIONS (1)
  - DEATH [None]
